FAERS Safety Report 19580854 (Version 5)
Quarter: 2023Q2

REPORT INFORMATION
  Report Type: Spontaneous
  Country: US (occurrence: US)
  Receive Date: 20210719
  Receipt Date: 20230508
  Transmission Date: 20230722
  Serious: Yes (Death, Other)
  Sender: FDA-Public Use
  Company Number: US-PFIZER INC-2021881881

PATIENT
  Age: 54 Year
  Sex: Female
  Weight: 68.04 kg

DRUGS (4)
  1. DESVENLAFAXINE SUCCINATE [Suspect]
     Active Substance: DESVENLAFAXINE SUCCINATE
     Indication: Anger
     Dosage: 50 MG, DAILY
     Route: 048
     Dates: start: 20190427, end: 20190428
  2. DESVENLAFAXINE SUCCINATE [Suspect]
     Active Substance: DESVENLAFAXINE SUCCINATE
     Indication: Depression
  3. DESVENLAFAXINE SUCCINATE [Suspect]
     Active Substance: DESVENLAFAXINE SUCCINATE
     Indication: Depression
  4. DESVENLAFAXINE SUCCINATE [Suspect]
     Active Substance: DESVENLAFAXINE SUCCINATE
     Indication: Tension

REACTIONS (12)
  - Death [Fatal]
  - Suicide attempt [Unknown]
  - Drug dependence [Unknown]
  - Drug ineffective [Unknown]
  - Drug intolerance [Unknown]
  - Depression [Unknown]
  - Delusion [Unknown]
  - Head injury [Unknown]
  - Dizziness [Unknown]
  - Pain [Unknown]
  - Headache [Unknown]
  - Nausea [Unknown]
